FAERS Safety Report 10083412 (Version 1)
Quarter: 2014Q2

REPORT INFORMATION
  Report Type: Spontaneous
  Country: US (occurrence: None)
  Receive Date: 20140416
  Receipt Date: 20140416
  Transmission Date: 20141212
  Serious: No
  Sender: FDA-Public Use
  Company Number: None

PATIENT
  Age: 42 Year
  Sex: Female
  Weight: 65.77 kg

DRUGS (1)
  1. SLIM TRIM U [Suspect]
     Indication: WEIGHT DECREASED
     Dosage: 2 PILLS ONCE DAILY TAKEN BY MOUTH
     Route: 048
     Dates: start: 20140413, end: 20140414

REACTIONS (4)
  - Insomnia [None]
  - Adverse drug reaction [None]
  - Product quality issue [None]
  - Product formulation issue [None]
